FAERS Safety Report 5861374-8 (Version None)
Quarter: 2008Q3

REPORT INFORMATION
  Report Type: 
  Country: None (occurrence: None)
  Receive Date: 20080827
  Receipt Date: 20080602
  Transmission Date: 20090109
  Serious: No
  Sender: FDA-Public Use
  Company Number: US-ABBOTT-08P-163-0450459-00

PATIENT
  Sex: Female

DRUGS (9)
  1. COATED PDS [Suspect]
     Indication: HIGH DENSITY LIPOPROTEIN DECREASED
     Route: 048
     Dates: start: 20080505
  2. COATED PDS [Suspect]
     Indication: BLOOD TRIGLYCERIDES INCREASED
  3. INEGY [Concomitant]
     Indication: BLOOD TRIGLYCERIDES INCREASED
     Route: 048
  4. PRINZIDE [Concomitant]
     Indication: HYPERTENSION
     Route: 048
  5. INSULIN [Concomitant]
     Indication: DIABETES MELLITUS
     Route: 058
  6. INSULIN PUMP [Concomitant]
     Indication: DIABETES MELLITUS
  7. PAROXETINE HCL [Concomitant]
     Indication: DRUG USE FOR UNKNOWN INDICATION
     Route: 048
  8. FLAX SEED [Concomitant]
     Indication: MEDICAL DIET
     Route: 048
  9. LOVAZA [Concomitant]
     Indication: SUPPLEMENTATION THERAPY
     Route: 048

REACTIONS (1)
  - BLOOD GLUCOSE INCREASED [None]
